FAERS Safety Report 4646439-0 (Version None)
Quarter: 2005Q2

REPORT INFORMATION
  Report Type: 
  Country: None (occurrence: None)
  Receive Date: 20050427
  Receipt Date: 20021017
  Transmission Date: 20051028
  Serious: No
  Sender: FDA-Public Use
  Company Number: US-GLAXOSMITHKLINE-A0383681A

PATIENT
  Age: 56 Year
  Sex: Female

DRUGS (15)
  1. FLOVENT [Suspect]
     Dosage: 88MCG TWICE PER DAY
     Route: 055
  2. SEREVENT [Suspect]
     Dosage: 2PUFF TWICE PER DAY
     Route: 055
  3. INTAL [Concomitant]
     Route: 055
  4. INTAL [Concomitant]
     Route: 045
  5. FLONASE [Concomitant]
     Route: 045
  6. VASOTEC [Concomitant]
  7. VENTOLIN HFA [Concomitant]
     Route: 055
  8. NORFLEX [Concomitant]
  9. ANTIBIOTICS [Concomitant]
  10. CLARINEX [Concomitant]
  11. NEXIUM [Concomitant]
  12. ADVAIR DISKUS 100/50 [Concomitant]
  13. WELLBUTRIN [Concomitant]
  14. XANAX [Concomitant]
  15. SYNVISC [Concomitant]

REACTIONS (4)
  - HYPERSENSITIVITY [None]
  - MOUTH ULCERATION [None]
  - ORAL MUCOSAL BLISTERING [None]
  - PHARYNGEAL OEDEMA [None]
